FAERS Safety Report 9558251 (Version 5)
Quarter: 2013Q4

REPORT INFORMATION
  Report Type: Report from Study
  Country: IE (occurrence: IE)
  Receive Date: 20130926
  Receipt Date: 20131204
  Transmission Date: 20140711
  Serious: Yes (Other)
  Sender: FDA-Public Use
  Company Number: IE-US-EMD SERONO, INC.-7238875

PATIENT
  Age: 48 Year
  Sex: Female

DRUGS (7)
  1. REBIF [Suspect]
     Indication: RELAPSING-REMITTING MULTIPLE SCLEROSIS
     Route: 058
     Dates: end: 201004
  2. REBIF [Suspect]
     Route: 058
     Dates: start: 201006
  3. AUGMENTIN /00756801/ [Suspect]
     Indication: MASTITIS
  4. XANAX [Concomitant]
     Indication: ANXIETY
  5. TRADOL [Concomitant]
     Indication: PAIN
  6. NEUROFEN [Concomitant]
     Indication: ANALGESIC THERAPY
  7. PROVIGIL [Concomitant]
     Indication: PRODUCT USED FOR UNKNOWN INDICATION

REACTIONS (6)
  - Intraductal proliferative breast lesion [Unknown]
  - Mastitis [Recovered/Resolved]
  - Hypoaesthesia [Not Recovered/Not Resolved]
  - Pain in extremity [Not Recovered/Not Resolved]
  - Post procedural complication [Recovered/Resolved]
  - Candida infection [Recovered/Resolved]
